FAERS Safety Report 8920712 (Version 1)
Quarter: 2012Q4

REPORT INFORMATION
  Report Type: 
  Country: JP (occurrence: JP)
  Receive Date: 20121122
  Receipt Date: 20121122
  Transmission Date: 20130627
  Serious: Yes (Other)
  Sender: FDA-Public Use
  Company Number: JP-009507513-1211JPN008396

PATIENT
  Age: 67 Year
  Sex: Male
  Weight: 56 kg

DRUGS (19)
  1. PEGINTRON [Suspect]
     Indication: CHRONIC HEPATITIS C
     Dosage: 1.5 Microgram per kilogram, qw
     Route: 058
     Dates: start: 20120330, end: 20120511
  2. REBETOL [Suspect]
     Indication: CHRONIC HEPATITIS C
     Dosage: 800 mg, qd
     Route: 048
     Dates: start: 20120330, end: 20120407
  3. REBETOL [Suspect]
     Dosage: 600 mg, qd
     Route: 048
     Dates: start: 20120407, end: 20120420
  4. REBETOL [Suspect]
     Dosage: 400 mg, qd
     Route: 048
     Dates: start: 20120421, end: 20120518
  5. REBETOL [Suspect]
     Dosage: 400 mg, qd
     Route: 048
     Dates: start: 20120518, end: 20120522
  6. TELAVIC [Suspect]
     Indication: CHRONIC HEPATITIS C
     Dosage: 2250 milligram, qd
     Route: 048
     Dates: start: 20120330, end: 20120510
  7. TELAVIC [Suspect]
     Dosage: 1750 milligram, qd
     Route: 048
     Dates: start: 20120511, end: 20120518
  8. MEILAX [Concomitant]
     Dosage: 1 mg, prn : Formulation: POR
     Route: 048
  9. MEILAX [Concomitant]
     Dosage: 1 mg, qd , Formulation: POR
     Route: 048
  10. MYSLEE [Concomitant]
     Dosage: 5 mg, prn , Formulation: POR
     Route: 048
     Dates: end: 20120404
  11. BIOFERMIN R [Concomitant]
     Dosage: 1 DF, prn
     Route: 048
  12. HIRUDOID [Concomitant]
     Indication: PROPHYLAXIS
     Dosage: UNK, prn
     Route: 061
     Dates: start: 20120330
  13. GASTER [Concomitant]
     Indication: PROPHYLAXIS
     Dosage: 20 mg, bid , Formulation: POR
     Route: 048
     Dates: start: 20120330
  14. NAUZELIN [Concomitant]
     Dosage: 10 mg, tid : Formulation: POR
     Route: 048
     Dates: start: 20120402
  15. COCARL [Concomitant]
     Dosage: 400 mg, tid
     Route: 048
     Dates: start: 20120402, end: 20120521
  16. ZYLORIC [Concomitant]
     Dosage: 100 mg / on alternate days
     Route: 048
     Dates: start: 20120404, end: 20120504
  17. LENDORMIN [Concomitant]
     Dosage: 0.25 mg, qd: Formulation: POR
     Route: 048
  18. FEBURIC [Concomitant]
     Dosage: 10 mg, qd ; Formulation: POR
     Route: 048
  19. PROTECADIN [Concomitant]
     Dosage: 20 mg, qd ; Formulation: POR
     Route: 048

REACTIONS (1)
  - Anaemia [Recovered/Resolved]
